FAERS Safety Report 25261239 (Version 2)
Quarter: 2025Q3

REPORT INFORMATION
  Report Type: Report from Study
  Country: US (occurrence: US)
  Receive Date: 20250501
  Receipt Date: 20250704
  Transmission Date: 20251020
  Serious: Yes (Other)
  Sender: NOVARTIS
  Company Number: US-002147023-NVSC2025US070124

PATIENT
  Sex: Female

DRUGS (1)
  1. KESIMPTA [Suspect]
     Active Substance: OFATUMUMAB
     Indication: Product used for unknown indication
     Route: 065
     Dates: start: 20250425

REACTIONS (5)
  - Multiple sclerosis [Unknown]
  - Feeling abnormal [Unknown]
  - Hypokinesia [Unknown]
  - Memory impairment [Unknown]
  - Migraine [Unknown]
